FAERS Safety Report 23861634 (Version 1)
Quarter: 2024Q2

REPORT INFORMATION
  Report Type: Spontaneous
  Country: US (occurrence: US)
  Receive Date: 20240516
  Receipt Date: 20240516
  Transmission Date: 20240716
  Serious: No
  Sender: FDA-Public Use
  Company Number: US-ABBVIE-5761728

PATIENT

DRUGS (1)
  1. LASTACAFT [Suspect]
     Active Substance: ALCAFTADINE
     Indication: Product used for unknown indication
     Route: 065

REACTIONS (4)
  - Pruritus [Recovering/Resolving]
  - Eyelid erosion [Recovering/Resolving]
  - Ocular hyperaemia [Recovering/Resolving]
  - Seasonal allergy [Unknown]
